FAERS Safety Report 18741062 (Version 5)
Quarter: 2021Q3

REPORT INFORMATION
  Report Type: Report from Study
  Country: CN (occurrence: CN)
  Receive Date: 20210114
  Receipt Date: 20210723
  Transmission Date: 20211014
  Serious: Yes (Life-Threatening, Hospitalization, Disabling, Other)
  Sender: FDA-Public Use
  Company Number: CN-TAKEDA-2021TUS002258

PATIENT
  Age: 29 Year
  Sex: Male
  Weight: 67 kg

DRUGS (17)
  1. ADVATE [Suspect]
     Active Substance: ANTIHEMOPHILIC FACTOR, HUMAN RECOMBINANT
     Indication: PROPHYLAXIS
     Dosage: UNK
     Route: 042
  2. ADVATE [Suspect]
     Active Substance: ANTIHEMOPHILIC FACTOR, HUMAN RECOMBINANT
     Dosage: 750 INTERNATIONAL UNIT
     Route: 042
     Dates: start: 20210109
  3. BUTORPHANOL TARTRATE. [Concomitant]
     Active Substance: BUTORPHANOL TARTRATE
     Indication: PAIN
     Dosage: 2 MILLIGRAM, QD
     Dates: start: 20210122, end: 20210123
  4. VITAMIN K1 [Concomitant]
     Active Substance: PHYTONADIONE
     Indication: SUPPLEMENTATION THERAPY
     Dosage: 10 MILLIGRAM, QD
     Dates: start: 20210121, end: 20210121
  5. LANSOPRAZOLE. [Concomitant]
     Active Substance: LANSOPRAZOLE
     Indication: DUODENOGASTRIC REFLUX
     Dosage: 30 MILLIGRAM, QD
     Dates: start: 20210122, end: 20210202
  6. TROPISETRON [Concomitant]
     Active Substance: TROPISETRON
     Indication: VOMITING
     Dosage: 4.48 MILLIGRAM, QD
     Dates: start: 20210121, end: 20210121
  7. ADVATE [Suspect]
     Active Substance: ANTIHEMOPHILIC FACTOR, HUMAN RECOMBINANT
     Indication: PROPHYLAXIS
     Dosage: UNK
     Route: 042
  8. PEGYLATED RECOMBINANT HUMAN FACTOR VIII [Suspect]
     Active Substance: ANTIHEMOPHILIC FACTOR, PEGYLATED (MW 20000) HUMAN SEQUENCE RECOMBINANT
     Indication: PRODUCT USED FOR UNKNOWN INDICATION
     Dosage: 1000 INTERNATIONAL UNIT, BID
     Route: 042
     Dates: start: 20210126, end: 20210201
  9. PROMETHAZINE [Concomitant]
     Active Substance: PROMETHAZINE HYDROCHLORIDE
     Indication: PSYCHIATRIC SYMPTOM
     Dosage: 50 MILLIGRAM, QD
     Dates: start: 20210122, end: 20210122
  10. ADVATE [Suspect]
     Active Substance: ANTIHEMOPHILIC FACTOR, HUMAN RECOMBINANT
     Dosage: 750 INTERNATIONAL UNIT
     Route: 042
     Dates: start: 20210109
  11. PEGYLATED RECOMBINANT HUMAN FACTOR VIII [Suspect]
     Active Substance: ANTIHEMOPHILIC FACTOR, PEGYLATED (MW 20000) HUMAN SEQUENCE RECOMBINANT
     Indication: PRODUCT USED FOR UNKNOWN INDICATION
     Dosage: 1000 INTERNATIONAL UNIT, BID
     Route: 042
     Dates: start: 20210126, end: 20210201
  12. ADVATE [Suspect]
     Active Substance: ANTIHEMOPHILIC FACTOR, HUMAN RECOMBINANT
     Dosage: 750 INTERNATIONAL UNIT
     Route: 042
     Dates: start: 20210109
  13. PEGYLATED RECOMBINANT HUMAN FACTOR VIII [Suspect]
     Active Substance: ANTIHEMOPHILIC FACTOR, PEGYLATED (MW 20000) HUMAN SEQUENCE RECOMBINANT
     Indication: PRODUCT USED FOR UNKNOWN INDICATION
     Dosage: 1000 INTERNATIONAL UNIT, BID
     Route: 042
     Dates: start: 20210126, end: 20210201
  14. ADVATE [Suspect]
     Active Substance: ANTIHEMOPHILIC FACTOR, HUMAN RECOMBINANT
     Indication: PROPHYLAXIS
     Dosage: UNK
     Route: 042
  15. SODIUM VALPROATE [Concomitant]
     Active Substance: VALPROATE SODIUM
     Indication: EPILEPSY
     Dosage: 0.8 GRAM, QD
     Dates: start: 20210121, end: 20210121
  16. DEZOCINE [Concomitant]
     Active Substance: DEZOCINE
     Dosage: 5 MILLIGRAM, QD
     Dates: start: 20210122, end: 20210126
  17. OXIRACETAM [Concomitant]
     Active Substance: OXIRACETAM

REACTIONS (8)
  - Hemiplegia [Not Recovered/Not Resolved]
  - Haemophilia [Not Recovered/Not Resolved]
  - Haematoma [Recovered/Resolved with Sequelae]
  - Cerebral haematoma [Recovered/Resolved with Sequelae]
  - Haemorrhage intracranial [Recovered/Resolved with Sequelae]
  - Fall [Recovered/Resolved with Sequelae]
  - Cerebral haemorrhage [Recovered/Resolved with Sequelae]
  - Subarachnoid haemorrhage [Not Recovered/Not Resolved]

NARRATIVE: CASE EVENT DATE: 20210110
